FAERS Safety Report 7076278-5 (Version None)
Quarter: 2010Q4

REPORT INFORMATION
  Report Type: 
  Country: None (occurrence: None)
  Receive Date: 20101101
  Receipt Date: 20101018
  Transmission Date: 20110411
  Serious: Yes (Other)
  Sender: FDA-Public Use
  Company Number: NZ-RANBAXY-2010RR-39008

PATIENT
  Age: 81 Year
  Sex: Male

DRUGS (1)
  1. MINOCYCLINE HCL [Suspect]
     Indication: ROSACEA
     Dosage: 50 MG, BID
     Route: 048

REACTIONS (2)
  - PIGMENTATION DISORDER [None]
  - SCLERAL PIGMENTATION [None]
